FAERS Safety Report 18697041 (Version 2)
Quarter: 2021Q1

REPORT INFORMATION
  Report Type: Spontaneous
  Country: US (occurrence: US)
  Receive Date: 20210104
  Receipt Date: 20210108
  Transmission Date: 20210419
  Serious: Yes (Other)
  Sender: FDA-Public Use
  Company Number: US-009507513-2012USA013226

PATIENT
  Age: 62 Year
  Sex: Female

DRUGS (2)
  1. ZOLEDRONATE DISODIUM [Suspect]
     Active Substance: ZOLEDRONATE DISODIUM
     Indication: OSTEOPOROSIS POSTMENOPAUSAL
     Dosage: FOR 1 YEAR
     Route: 042
  2. FOSAMAX [Suspect]
     Active Substance: ALENDRONATE SODIUM
     Indication: OSTEOPOROSIS POSTMENOPAUSAL
     Dosage: FOR 7 YEARS
     Route: 048

REACTIONS (1)
  - Atypical femur fracture [Unknown]
